FAERS Safety Report 21256544 (Version 1)
Quarter: 2022Q3

REPORT INFORMATION
  Report Type: Report from Study
  Country: CA (occurrence: CA)
  Receive Date: 20220826
  Receipt Date: 20220826
  Transmission Date: 20221026
  Serious: Yes (Other)
  Sender: FDA-Public Use
  Company Number: None

PATIENT
  Age: 56 Year
  Sex: Male

DRUGS (4)
  1. METHOTREXATE [Suspect]
     Active Substance: METHOTREXATE
     Indication: Product used for unknown indication
     Dosage: 1 EVERY 1 WEEKS
     Route: 058
  2. CELEBREX [Concomitant]
     Active Substance: CELECOXIB
     Indication: Product used for unknown indication
     Route: 048
  3. EPIPEN [Concomitant]
     Active Substance: EPINEPHRINE
     Indication: Food allergy
     Dosage: SOLUTION INTRAMUSCULAR, 0.15 MG/0.3 ML AUTO-INJECTOR
     Route: 058
  4. SULFASALAZINE [Concomitant]
     Active Substance: SULFASALAZINE
     Indication: Product used for unknown indication
     Route: 048

REACTIONS (7)
  - Dyspepsia [Unknown]
  - Gait disturbance [Unknown]
  - Movement disorder [Unknown]
  - Nausea [Unknown]
  - Pain [Unknown]
  - Psoriatic arthropathy [Unknown]
  - Treatment failure [Unknown]
